FAERS Safety Report 7879737-8 (Version None)
Quarter: 2011Q4

REPORT INFORMATION
  Report Type: 
  Country: None (occurrence: None)
  Receive Date: 20111101
  Receipt Date: 20111018
  Transmission Date: 20120403
  Serious: Yes (Life-Threatening)
  Sender: FDA-Public Use
  Company Number: JP-MYLANLABS-BN-1-20430112

PATIENT
  Age: 80 Year
  Sex: Female
  Weight: 54.89 kg

DRUGS (6)
  1. SEVOFLURANE [Suspect]
     Indication: MAINTENANCE OF ANAESTHESIA
     Dosage: UNK, UNK
     Route: 055
  2. ATROPINE [Suspect]
     Dosage: UNK
     Route: 042
  3. OXYGEN [Concomitant]
  4. THIAMYLAL [Suspect]
     Indication: INDUCTION OF ANAESTHESIA
     Dosage: UNK, UNK
     Route: 065
  5. REMIFENTANIL [Suspect]
     Indication: ANAESTHESIA
     Dosage: UNK, UNK
     Route: 065
  6. ROCURONIUM BROMIDE [Suspect]
     Indication: INDUCTION OF ANAESTHESIA
     Dosage: UNK, UNK
     Route: 065

REACTIONS (2)
  - TORSADE DE POINTES [None]
  - VENTRICULAR ARRHYTHMIA [None]
